FAERS Safety Report 18599309 (Version 6)
Quarter: 2021Q2

REPORT INFORMATION
  Report Type: Spontaneous
  Country: US (occurrence: US)
  Receive Date: 20201210
  Receipt Date: 20210409
  Transmission Date: 20210717
  Serious: Yes (Other)
  Sender: FDA-Public Use
  Company Number: US-CELGENEUS-USA-20201201728

PATIENT
  Sex: Male

DRUGS (4)
  1. REVLIMID [Suspect]
     Active Substance: LENALIDOMIDE
     Indication: PLASMA CELL MYELOMA IN REMISSION
     Dosage: 25 MILLIGRAM
     Route: 048
     Dates: start: 201904
  2. REVLIMID [Suspect]
     Active Substance: LENALIDOMIDE
     Dosage: 25 MILLIGRAM
     Route: 048
     Dates: start: 20201111
  3. REVLIMID [Suspect]
     Active Substance: LENALIDOMIDE
     Indication: PLASMA CELL MYELOMA
     Dosage: 25 MILLIGRAM
     Route: 048
     Dates: start: 201908
  4. REVLIMID [Suspect]
     Active Substance: LENALIDOMIDE
     Dosage: 10 MILLIGRAM
     Route: 048
     Dates: start: 202102

REACTIONS (12)
  - Diplopia [Unknown]
  - Diarrhoea [Unknown]
  - Palpitations [Unknown]
  - Nausea [Unknown]
  - Product dose omission issue [Unknown]
  - Cardiac murmur [Unknown]
  - Dizziness [Unknown]
  - Cataract [Unknown]
  - Photophobia [Unknown]
  - Haemorrhoids [Unknown]
  - Fatigue [Unknown]
  - Dyspepsia [Unknown]

NARRATIVE: CASE EVENT DATE: 2020
